FAERS Safety Report 24920442 (Version 1)
Quarter: 2025Q1

REPORT INFORMATION
  Report Type: Spontaneous
  Country: US (occurrence: US)
  Receive Date: 20250204
  Receipt Date: 20250204
  Transmission Date: 20250409
  Serious: No
  Sender: EXELIXIS
  Company Number: US-EXELIXIS-CABO-24074017

PATIENT

DRUGS (4)
  1. CABOMETYX [Suspect]
     Active Substance: CABOZANTINIB S-MALATE
     Indication: Renal cell carcinoma
  2. CABOMETYX [Suspect]
     Active Substance: CABOZANTINIB S-MALATE
     Indication: Rhabdoid tumour of the kidney
  3. OPDIVO [Suspect]
     Active Substance: NIVOLUMAB
     Indication: Renal cell carcinoma
  4. OPDIVO [Suspect]
     Active Substance: NIVOLUMAB
     Indication: Rhabdoid tumour of the kidney

REACTIONS (1)
  - Pulmonary mass [Unknown]
